FAERS Safety Report 10484992 (Version 3)
Quarter: 2014Q4

REPORT INFORMATION
  Report Type: Spontaneous
  Country: FI (occurrence: FI)
  Receive Date: 20140930
  Receipt Date: 20141009
  Transmission Date: 20150528
  Serious: Yes (Other)
  Sender: FDA-Public Use
  Company Number: FI-ELI_LILLY_AND_COMPANY-FI201408010956

PATIENT
  Age: 56 Year
  Sex: Male

DRUGS (9)
  1. SIMVASTATIN. [Concomitant]
     Active Substance: SIMVASTATIN
     Dosage: 40 MG, UNKNOWN
     Route: 065
  2. VOXRA [Concomitant]
     Active Substance: BUPROPION HYDROCHLORIDE
     Indication: SELF-INJURIOUS IDEATION
     Dosage: 150 MG, EACH MORNING
  3. ZYPADHERA [Suspect]
     Active Substance: OLANZAPINE PAMOATE
     Indication: PSYCHOTIC DISORDER
     Dosage: 300 MG, 2/M
     Route: 030
     Dates: start: 20140220
  4. ZYPADHERA [Suspect]
     Active Substance: OLANZAPINE PAMOATE
     Dosage: 405 MG, MONTHLY (1/M)
     Route: 030
  5. IPSATOL                            /00079502/ [Concomitant]
     Dosage: 2 MG, BID
     Route: 065
  6. MELATONIN [Concomitant]
     Active Substance: MELATONIN
     Indication: SLEEP DISORDER
     Dosage: 6 MG, EACH EVENING
     Route: 065
  7. LEVOZIN                            /00038602/ [Concomitant]
     Active Substance: LEVOMEPROMAZINE MALEATE
     Indication: SLEEP DISORDER
     Dosage: 25 MG, QD
     Route: 065
  8. ASASANTIN [Concomitant]
     Active Substance: ASPIRIN\DIPYRIDAMOLE
     Indication: CEREBRAL INFARCTION
     Dosage: 200 MG, UNKNOWN
     Route: 065
     Dates: start: 2012
  9. RIVATRIL [Concomitant]
     Active Substance: CLONAZEPAM
     Indication: ANXIETY
     Dosage: 2 MG, EACH EVENING

REACTIONS (4)
  - Anxiety [Unknown]
  - Insomnia [Unknown]
  - Hallucination, auditory [Unknown]
  - Feeling abnormal [Unknown]
